FAERS Safety Report 19657593 (Version 1)
Quarter: 2021Q3

REPORT INFORMATION
  Report Type: Spontaneous
  Country: US (occurrence: US)
  Receive Date: 20210804
  Receipt Date: 20210804
  Transmission Date: 20211014
  Serious: Yes (Other)
  Sender: FDA-Public Use
  Company Number: US-PFIZER INC-202100967715

PATIENT
  Age: 66 Year
  Sex: Male

DRUGS (9)
  1. IRON [Concomitant]
     Active Substance: IRON
     Dosage: (159(45)MG TABLET ER)
  2. INLYTA [Suspect]
     Active Substance: AXITINIB
     Indication: MALIGNANT NEOPLASM OF RENAL PELVIS
     Dosage: 5 MG, 2X/DAY
     Route: 048
     Dates: start: 20210723
  3. MEGESTROL ACETATE. [Concomitant]
     Active Substance: MEGESTROL ACETATE
     Dosage: 100 % (POWDER)
  4. AMLODIPINE BESYLATE. [Concomitant]
     Active Substance: AMLODIPINE BESYLATE
     Dosage: 10 MG
  5. ONDANSETRON HCL [Concomitant]
     Active Substance: ONDANSETRON HYDROCHLORIDE
     Dosage: 4 MG
  6. FLUDROCORTISONE ACETATE. [Concomitant]
     Active Substance: FLUDROCORTISONE ACETATE
  7. ACETAMINOPHEN;HYDROCODONE [Concomitant]
     Active Substance: ACETAMINOPHEN\HYDROCODONE
  8. HYDROCODONE [Concomitant]
     Active Substance: HYDROCODONE
  9. LACTULOSE. [Concomitant]
     Active Substance: LACTULOSE
     Dosage: UNK, (10 G/15 ML SOLUTION)

REACTIONS (2)
  - Nausea [Unknown]
  - Oxygen saturation decreased [Unknown]

NARRATIVE: CASE EVENT DATE: 202107
